FAERS Safety Report 7286060-1 (Version None)
Quarter: 2011Q1

REPORT INFORMATION
  Report Type: 
  Country: None (occurrence: None)
  Receive Date: 20110210
  Receipt Date: 20110131
  Transmission Date: 20110831
  Serious: Yes (Hospitalization, Other)
  Sender: FDA-Public Use
  Company Number: AT-ELI_LILLY_AND_COMPANY-AT201102000542

PATIENT
  Age: 26 Year
  Sex: Female

DRUGS (2)
  1. TOPAMAX [Concomitant]
  2. ZYPREXA [Suspect]
     Dosage: 15 MG, DAILY (1/D)

REACTIONS (2)
  - HOSPITALISATION [None]
  - WEIGHT INCREASED [None]
